FAERS Safety Report 10353963 (Version 6)
Quarter: 2014Q3

REPORT INFORMATION
  Report Type: Spontaneous
  Country: US (occurrence: US)
  Receive Date: 20140731
  Receipt Date: 20140908
  Transmission Date: 20150326
  Serious: Yes (Hospitalization)
  Sender: FDA-Public Use
  Company Number: US-UNITED THERAPEUTICS-UNT-2014-004352

PATIENT
  Age: 55 Year
  Sex: Female
  Weight: 92.97 kg

DRUGS (6)
  1. ORENITRAM [Suspect]
     Active Substance: TREPROSTINIL
     Dosage: 3.75 MG, Q8H
     Route: 048
     Dates: start: 20140704
  2. ORENITRAM [Suspect]
     Active Substance: TREPROSTINIL
     Dosage: 3.25 MG, TID
     Route: 048
     Dates: start: 20140704
  3. ORENITRAM [Suspect]
     Active Substance: TREPROSTINIL
     Dosage: 3.75 MG, Q8H
     Route: 048
     Dates: start: 20140704
  4. ORENITRAM [Suspect]
     Active Substance: TREPROSTINIL
     Indication: PULMONARY ARTERIAL HYPERTENSION
     Dosage: 1 MG, Q8H
     Route: 048
     Dates: start: 20140704
  5. ORENITRAM [Suspect]
     Active Substance: TREPROSTINIL
     Dosage: 3 MG Q8H
     Route: 048
     Dates: start: 20140705
  6. REVATIO [Concomitant]
     Active Substance: SILDENAFIL CITRATE
     Indication: PRODUCT USED FOR UNKNOWN INDICATION

REACTIONS (9)
  - Appendicitis [Recovering/Resolving]
  - Pain in jaw [Unknown]
  - Decreased appetite [Unknown]
  - Abdominal discomfort [Recovering/Resolving]
  - Nausea [Unknown]
  - Food intolerance [Unknown]
  - Muscle spasms [Unknown]
  - Diarrhoea [Unknown]
  - Back pain [Unknown]

NARRATIVE: CASE EVENT DATE: 201407
